FAERS Safety Report 7037305-4 (Version None)
Quarter: 2010Q4

REPORT INFORMATION
  Report Type: 
  Country: None (occurrence: None)
  Receive Date: 20101011
  Receipt Date: 20101005
  Transmission Date: 20110411
  Serious: Yes (Other)
  Sender: FDA-Public Use
  Company Number: US-ROCHE-731300

PATIENT
  Age: 56 Year
  Sex: Male
  Weight: 69 kg

DRUGS (9)
  1. KLONOPIN [Suspect]
     Route: 065
  2. CHANTIX [Interacting]
     Route: 048
     Dates: start: 20100920
  3. VICODIN [Interacting]
     Route: 065
  4. PRISTIQ [Concomitant]
     Indication: DEPRESSION
     Route: 048
     Dates: start: 20100501
  5. PRISTIQ [Concomitant]
     Dosage: HE BROKE HIS BACK
     Route: 048
     Dates: start: 20100701
  6. PRISTIQ [Concomitant]
     Dosage: EXPERIENCED DEPRESSION, ANGER AND RESENTFUL
     Route: 048
     Dates: start: 20100801
  7. PRISTIQ [Concomitant]
     Dosage: INCREASED DOSE
     Route: 048
     Dates: start: 20100817
  8. MOBIC [Concomitant]
  9. BUSPAR [Concomitant]

REACTIONS (2)
  - DRUG INTERACTION [None]
  - PAIN [None]
